FAERS Safety Report 6314109-9 (Version None)
Quarter: 2009Q3

REPORT INFORMATION
  Report Type: 
  Country: None (occurrence: None)
  Receive Date: 20090817
  Receipt Date: 20090805
  Transmission Date: 20100115
  Serious: Yes (Hospitalization, Disabling)
  Sender: FDA-Public Use
  Company Number: 2009AL005120

PATIENT
  Age: 60 Year
  Sex: Male
  Weight: 84.8226 kg

DRUGS (32)
  1. DIGOXIN [Suspect]
     Dosage: 0.25MG, DAILY, PO; 0.125MG, DAILY, PO
     Route: 048
  2. VASOTEC [Concomitant]
  3. FUROSEMIDE [Concomitant]
  4. AMARYL [Concomitant]
  5. TRICOR [Concomitant]
  6. COREG [Concomitant]
  7. POTASSIUM CHLORIDE [Concomitant]
  8. CORTISPORIN [Concomitant]
  9. ENALAPRIL MALEATE [Concomitant]
  10. AVANDIA [Concomitant]
  11. MAGNESIUM OXIDE [Concomitant]
  12. TRICOR [Concomitant]
  13. GLIMEPIRIDE [Concomitant]
  14. ZOFRAN [Concomitant]
  15. NEO/POLYB/HC [Concomitant]
  16. FERROUS FUMARATE [Concomitant]
  17. GLIPIZIDE [Concomitant]
  18. RANITIDINE [Concomitant]
  19. LISINOPRIL [Concomitant]
  20. LEVITRA [Concomitant]
  21. FERROUS SULFATE TAB [Concomitant]
  22. METFORMIN HCL [Concomitant]
  23. NEO/POLYYXIN/HC [Concomitant]
  24. FLOXIN [Concomitant]
  25. CIPRODEX [Concomitant]
  26. NIASPAN [Concomitant]
  27. OMEPRAZOLE [Concomitant]
  28. JANUVIA [Concomitant]
  29. FLEXTRA [Concomitant]
  30. LANTUS [Concomitant]
  31. CARVEDILOL [Concomitant]
  32. AMLODIPINE [Concomitant]

REACTIONS (13)
  - ANAEMIA [None]
  - ASTHENIA [None]
  - CARDIOACTIVE DRUG LEVEL INCREASED [None]
  - DEHYDRATION [None]
  - HELICOBACTER GASTRITIS [None]
  - HYPOPHAGIA [None]
  - HYPOVOLAEMIA [None]
  - LEFT VENTRICULAR HYPERTROPHY [None]
  - NAUSEA [None]
  - NECK PAIN [None]
  - RENAL FAILURE ACUTE [None]
  - THERAPEUTIC AGENT TOXICITY [None]
  - VOMITING [None]
